FAERS Safety Report 9332000 (Version 1)
Quarter: 2013Q2

REPORT INFORMATION
  Report Type: Spontaneous
  Country: DE (occurrence: None)
  Receive Date: 20130603
  Receipt Date: 20130603
  Transmission Date: 20140414
  Serious: Yes (Hospitalization)
  Sender: FDA-Public Use
  Company Number: TPG2013A00613

PATIENT
  Age: 56 Year
  Sex: Female

DRUGS (4)
  1. COMPETACT [Suspect]
     Indication: DIABETES MELLITUS
     Dosage: 30MG OF PIOGLIZAZONE/ 1700MG OF METFORMIN - HC1
     Route: 048
     Dates: start: 20101029
  2. ENALAPRIL [Concomitant]
  3. STATIN (HMG COA REDUCCTASE INHIBITORS) [Concomitant]
  4. UNSPECIFIED ANTIDEPRESSANT (ANTIDEPRESSANT) [Concomitant]

REACTIONS (1)
  - Vulval cancer [None]
